FAERS Safety Report 14430654 (Version 1)
Quarter: 2018Q1

REPORT INFORMATION
  Report Type: Report from Study
  Country: NL (occurrence: NL)
  Receive Date: 20180124
  Receipt Date: 20180124
  Transmission Date: 20180509
  Serious: Yes (Hospitalization)
  Sender: FDA-Public Use
  Company Number: NL-IPSEN BIOPHARMACEUTICALS, INC.-2018-00968

PATIENT

DRUGS (10)
  1. LEUCOVORIN. [Suspect]
     Active Substance: LEUCOVORIN
     Indication: COLORECTAL CANCER
     Route: 042
     Dates: start: 20170413, end: 2017
  2. OXALIPLATIN. [Suspect]
     Active Substance: OXALIPLATIN
     Dates: start: 2017
  3. OXALIPLATIN. [Suspect]
     Active Substance: OXALIPLATIN
     Indication: COLORECTAL CANCER
     Route: 042
     Dates: start: 20170413, end: 2017
  4. PEGYLATED LIPOSOMAL IRINOTECAN [Suspect]
     Active Substance: IRINOTECAN HYDROCHLORIDE
     Indication: OFF LABEL USE
     Dosage: NOT REPORTED
     Route: 065
     Dates: start: 2017
  5. LEUCOVORIN. [Suspect]
     Active Substance: LEUCOVORIN
     Dates: start: 2017
  6. PEGYLATED LIPOSOMAL IRINOTECAN [Suspect]
     Active Substance: IRINOTECAN HYDROCHLORIDE
     Indication: COLORECTAL CANCER
     Dosage: 165 MG/M2
     Route: 042
     Dates: start: 20170413, end: 2017
  7. 5-FLUOROURACIL [Suspect]
     Active Substance: FLUOROURACIL
     Dates: start: 2017
  8. AVASTIN [Suspect]
     Active Substance: BEVACIZUMAB
     Indication: COLORECTAL CANCER
     Route: 042
     Dates: start: 20170413, end: 2017
  9. AVASTIN [Suspect]
     Active Substance: BEVACIZUMAB
     Dates: start: 2017
  10. 5-FLUOROURACIL [Suspect]
     Active Substance: FLUOROURACIL
     Indication: COLORECTAL CANCER
     Route: 042
     Dates: start: 20170413, end: 2017

REACTIONS (4)
  - Dehydration [Recovered/Resolved]
  - Off label use [Unknown]
  - Overdose [Unknown]
  - Diarrhoea [Recovered/Resolved]

NARRATIVE: CASE EVENT DATE: 20170420
